FAERS Safety Report 8968297 (Version 2)
Quarter: 2013Q3

REPORT INFORMATION
  Report Type: Spontaneous
  Country: US (occurrence: US)
  Receive Date: 20121217
  Receipt Date: 20130712
  Transmission Date: 20140515
  Serious: Yes (Other)
  Sender: FDA-Public Use
  Company Number: CHPA2012US025213

PATIENT
  Age: 76 Year
  Sex: Female

DRUGS (1)
  1. MAALOX ANTACID/ANTIGAS MAX QDTABS ASST [Suspect]
     Indication: ABDOMINAL DISTENSION
     Dosage: 2 TO 3, QD
     Route: 048

REACTIONS (2)
  - Drug dependence [Recovered/Resolved]
  - Incorrect drug administration duration [Unknown]
